FAERS Safety Report 16861529 (Version 1)
Quarter: 2019Q3

REPORT INFORMATION
  Report Type: Report from Study
  Country: CA (occurrence: CA)
  Receive Date: 20190927
  Receipt Date: 20190927
  Transmission Date: 20191005
  Serious: Yes (Other)
  Sender: FDA-Public Use
  Company Number: PHHY2012CA002353

PATIENT
  Age: 37 Year
  Sex: Female

DRUGS (1)
  1. GILENYA [Suspect]
     Active Substance: FINGOLIMOD HYDROCHLORIDE
     Indication: RELAPSING-REMITTING MULTIPLE SCLEROSIS
     Dosage: 0.5 MG, QD
     Route: 048
     Dates: start: 20111109

REACTIONS (7)
  - Oropharyngeal pain [Not Recovered/Not Resolved]
  - Smear cervix abnormal [Unknown]
  - Fungal infection [Unknown]
  - Cough [Not Recovered/Not Resolved]
  - Eye irritation [Unknown]
  - Urinary tract infection [Unknown]
  - Dysuria [Unknown]

NARRATIVE: CASE EVENT DATE: 20120127
